FAERS Safety Report 7202591-4 (Version None)
Quarter: 2010Q4

REPORT INFORMATION
  Report Type: 
  Country: None (occurrence: None)
  Receive Date: 20101229
  Receipt Date: 20101223
  Transmission Date: 20110411
  Serious: Yes (Hospitalization)
  Sender: FDA-Public Use
  Company Number: DE-B.I. PHARMACEUTICALS,INC./RIDGEFIELD-2010-DE-07171DE

PATIENT
  Age: 37 Year
  Sex: Female
  Weight: 82 kg

DRUGS (4)
  1. SIFROL 0,7 MG [Suspect]
     Indication: PARKINSON'S DISEASE
     Dosage: 2.1 MG
     Route: 048
  2. STALEVO [Concomitant]
     Indication: PARKINSON'S DISEASE
  3. QUENSYL [Concomitant]
     Indication: SYSTEMIC LUPUS ERYTHEMATOSUS
  4. PREDNISOLONE [Concomitant]
     Indication: SYSTEMIC LUPUS ERYTHEMATOSUS

REACTIONS (2)
  - CONFUSIONAL STATE [None]
  - MEDICATION ERROR [None]
